FAERS Safety Report 21965762 (Version 1)
Quarter: 2023Q1

REPORT INFORMATION
  Report Type: Spontaneous
  Country: US (occurrence: US)
  Receive Date: 20230208
  Receipt Date: 20230208
  Transmission Date: 20230418
  Serious: Yes (Hospitalization, Other)
  Sender: FDA-Public Use
  Company Number: US-GSK-US2023015518

PATIENT
  Age: 72 Year
  Sex: Female

DRUGS (1)
  1. BREO ELLIPTA [Suspect]
     Active Substance: FLUTICASONE FUROATE\VILANTEROL TRIFENATATE
     Indication: Pneumonia
     Dosage: BREO ELLIPTA INHALER 200/25 30 INHAL
     Route: 055
     Dates: start: 202212

REACTIONS (3)
  - Pneumonia [Not Recovered/Not Resolved]
  - Dyspnoea [Unknown]
  - Product use in unapproved indication [Unknown]

NARRATIVE: CASE EVENT DATE: 20221201
